FAERS Safety Report 9720509 (Version 1)
Quarter: 2013Q4

REPORT INFORMATION
  Report Type: Spontaneous
  Country: DE (occurrence: DE)
  Receive Date: 20131129
  Receipt Date: 20131129
  Transmission Date: 20140711
  Serious: Yes (Other)
  Sender: FDA-Public Use
  Company Number: DE-JNJFOC-20131114719

PATIENT
  Age: 21 Year
  Sex: Male
  Weight: 70 kg

DRUGS (1)
  1. RISPERDAL [Suspect]
     Indication: PRODUCT USED FOR UNKNOWN INDICATION
     Dosage: 4 MG
     Route: 048
     Dates: start: 20131122, end: 20131122

REACTIONS (5)
  - Suicide attempt [Unknown]
  - Intentional overdose [Unknown]
  - Dyskinesia [Unknown]
  - Tachycardia [Unknown]
  - Eye movement disorder [Unknown]
